FAERS Safety Report 11131083 (Version 12)
Quarter: 2016Q4

REPORT INFORMATION
  Report Type: Spontaneous
  Country: US (occurrence: US)
  Receive Date: 20150522
  Receipt Date: 20161221
  Transmission Date: 20170206
  Serious: Yes (Other)
  Sender: FDA-Public Use
  Company Number: US-009507513-1505USA007871

PATIENT
  Sex: Female
  Weight: 58.5 kg

DRUGS (1)
  1. IMPLANON [Suspect]
     Active Substance: ETONOGESTREL
     Indication: CONTRACEPTION
     Dosage: 1 ROD PER 3 YEARS
     Route: 059
     Dates: start: 20120516, end: 201512

REACTIONS (18)
  - Device dislocation [Recovered/Resolved]
  - Complication associated with device [Recovered/Resolved]
  - Oropharyngeal pain [Unknown]
  - Device difficult to use [Recovered/Resolved]
  - Surgery [Recovered/Resolved]
  - Ear pain [Unknown]
  - Congenital neuropathy [Unknown]
  - Hypokalaemia [Unknown]
  - Device difficult to use [Recovered/Resolved]
  - Contusion [Unknown]
  - Breast pain [Unknown]
  - Carpal tunnel syndrome [Unknown]
  - Neuropathy peripheral [Unknown]
  - Depression [Unknown]
  - Device difficult to use [Recovered/Resolved]
  - Incorrect drug administration duration [Unknown]
  - Rhinitis allergic [Unknown]
  - Anaemia [Unknown]

NARRATIVE: CASE EVENT DATE: 201205
